FAERS Safety Report 21350170 (Version 3)
Quarter: 2022Q4

REPORT INFORMATION
  Report Type: Spontaneous
  Country: DE (occurrence: DE)
  Receive Date: 20220919
  Receipt Date: 20221024
  Transmission Date: 20230113
  Serious: Yes (Hospitalization)
  Sender: FDA-Public Use
  Company Number: DE-NOVARTISPH-NVSC2022DE208876

PATIENT
  Age: 67 Year
  Sex: Male
  Weight: 80 kg

DRUGS (11)
  1. RIVASTIGMINE [Interacting]
     Active Substance: RIVASTIGMINE
     Indication: Product used for unknown indication
     Dosage: 4.6 MG, QD (1-0-0-0)
     Route: 062
  2. CARBIDOPA\ENTACAPONE\LEVODOPA [Interacting]
     Active Substance: CARBIDOPA\ENTACAPONE\LEVODOPA
     Indication: Product used for unknown indication
     Dosage: 325 MG, QID (25/200/100 MG, 1-1-1-1)
     Route: 048
  3. BENSERAZIDE [Interacting]
     Active Substance: BENSERAZIDE
     Indication: Product used for unknown indication
     Dosage: 125 MG, QD (25|100 MG, 1-0-0-0)
     Route: 048
  4. SCOPOLAMINE [Interacting]
     Active Substance: SCOPOLAMINE
     Indication: Product used for unknown indication
     Dosage: 0.33 MG (ACCORDING TO THE SCHEME)
     Route: 062
  5. CARBIDOPA\LEVODOPA [Suspect]
     Active Substance: CARBIDOPA\LEVODOPA
     Indication: Product used for unknown indication
     Dosage: 125 MG, QD (25/100 MG, 0-0-1-0)
     Route: 048
  6. ROPINIROLE [Interacting]
     Active Substance: ROPINIROLE
     Indication: Product used for unknown indication
     Dosage: 4 MG, QD (1-0-0-0)
     Route: 048
  7. ROPINIROLE [Interacting]
     Active Substance: ROPINIROLE
     Dosage: 4 MG, 1-0-0-0, TABLETTEN
     Route: 048
  8. DOMPERIDONE [Interacting]
     Active Substance: DOMPERIDONE
     Indication: Product used for unknown indication
     Dosage: 10 MG, TID ( 1-1-1-0)
     Route: 048
  9. ESOMEPRAZOLE [Concomitant]
     Active Substance: ESOMEPRAZOLE
     Indication: Product used for unknown indication
     Dosage: 40 MG, QD (1-0-0-0)
     Route: 048
  10. CHOLECALCIFEROL [Concomitant]
     Active Substance: CHOLECALCIFEROL
     Indication: Product used for unknown indication
     Dosage: 1000 UNK, QD (1000 IE, 1-0-0-0)
     Route: 048
  11. FOLIC ACID [Concomitant]
     Active Substance: FOLIC ACID
     Indication: Product used for unknown indication
     Dosage: 5 MG, QD (1-0-0-0)
     Route: 048

REACTIONS (10)
  - Disturbance in attention [Unknown]
  - Craniocerebral injury [Unknown]
  - Aspiration [Unknown]
  - Thrombocytopenia [Unknown]
  - Fall [Unknown]
  - Vomiting [Unknown]
  - Incorrect product dosage form administered [Unknown]
  - Labelled drug-drug interaction medication error [Unknown]
  - Product monitoring error [Unknown]
  - Drug interaction [Unknown]
